FAERS Safety Report 4494694-2 (Version None)
Quarter: 2004Q4

REPORT INFORMATION
  Report Type: 
  Country: None (occurrence: None)
  Receive Date: 20041103
  Receipt Date: 20041019
  Transmission Date: 20050328
  Serious: Yes (Death)
  Sender: FDA-Public Use
  Company Number: 8007789

PATIENT
  Age: 29 Year

DRUGS (2)
  1. ACETAMINOPHEN AND HYDROCODONE BITARTRATE [Suspect]
     Dosage: PO
     Route: 048
     Dates: end: 20030101
  2. TRAZODONE HCL [Suspect]
     Dosage: PO
     Route: 048
     Dates: end: 20030101

REACTIONS (1)
  - MULTIPLE DRUG OVERDOSE [None]
